FAERS Safety Report 8759974 (Version 3)
Quarter: 2013Q3

REPORT INFORMATION
  Report Type: Spontaneous
  Country: US (occurrence: US)
  Receive Date: 20120829
  Receipt Date: 20130829
  Transmission Date: 20140515
  Serious: Yes (Hospitalization, Disabling, Other)
  Sender: FDA-Public Use
  Company Number: US-009507513-1203USA03311

PATIENT
  Sex: Female

DRUGS (6)
  1. FOSAMAX [Suspect]
     Indication: OSTEOPOROSIS
     Dosage: 70 MG, UNK
     Route: 048
     Dates: start: 2004, end: 201005
  2. FOSAMAX [Suspect]
     Indication: OSTEOPENIA
  3. FOSAMAX [Suspect]
     Indication: OSTEOPOROSIS
     Dosage: 70 MG, UNK
     Route: 048
     Dates: start: 2008, end: 2010
  4. FOSAMAX [Suspect]
     Indication: OSTEOPENIA
  5. ALENDRONATE SODIUM [Suspect]
     Indication: OSTEOPOROSIS
     Dosage: 70 MG, UNK
  6. ALENDRONATE SODIUM [Suspect]
     Indication: OSTEOPENIA

REACTIONS (62)
  - Adverse event [Unknown]
  - Asthma [Not Recovered/Not Resolved]
  - Rotator cuff syndrome [Recovering/Resolving]
  - Arthropathy [Recovering/Resolving]
  - Exostosis [Unknown]
  - Bursitis [Unknown]
  - Cubital tunnel syndrome [Unknown]
  - Coccydynia [Unknown]
  - Fibromyalgia [Unknown]
  - Depression [Unknown]
  - Heart rate irregular [Unknown]
  - Joint injury [Unknown]
  - Tonsillar disorder [Unknown]
  - Intervertebral disc degeneration [Recovering/Resolving]
  - Fatigue [Not Recovered/Not Resolved]
  - Sleep disorder [Not Recovered/Not Resolved]
  - Endometrial disorder [Unknown]
  - Rubella [Unknown]
  - Cardiac murmur [Unknown]
  - Cystitis [Unknown]
  - Migraine [Unknown]
  - Haemorrhoids [Unknown]
  - Hypertension [Unknown]
  - Premenstrual syndrome [Unknown]
  - Bladder disorder [Unknown]
  - Conjunctivitis [Unknown]
  - Ankle fracture [Unknown]
  - Foot fracture [Unknown]
  - Cervical spinal stenosis [Unknown]
  - Visual acuity reduced [Unknown]
  - Sinusitis [Unknown]
  - Cardiac valve disease [Unknown]
  - Sinus disorder [Unknown]
  - Bone disorder [Unknown]
  - Scar [Unknown]
  - Ligament laxity [Unknown]
  - Abdominal pain lower [Unknown]
  - Myalgia [Not Recovered/Not Resolved]
  - Gastrooesophageal reflux disease [Unknown]
  - Femoral neck fracture [Recovered/Resolved]
  - Intramedullary rod insertion [Recovered/Resolved]
  - Anaemia postoperative [Recovered/Resolved]
  - Bone disorder [Unknown]
  - Jaw disorder [Unknown]
  - Emotional distress [Unknown]
  - Pain [Unknown]
  - Spinal disorder [Unknown]
  - Gallbladder disorder [Unknown]
  - Spinal fusion surgery [Unknown]
  - Sinus disorder [Unknown]
  - Osteoporosis [Not Recovered/Not Resolved]
  - Multiple fractures [Unknown]
  - Femur fracture [Unknown]
  - Bone density decreased [Not Recovered/Not Resolved]
  - Stress fracture [Unknown]
  - Vitamin D deficiency [Unknown]
  - Calcium deficiency [Unknown]
  - Temporomandibular joint syndrome [Unknown]
  - Tooth disorder [Unknown]
  - Post-traumatic neck syndrome [Not Recovered/Not Resolved]
  - Road traffic accident [Unknown]
  - Blood cholesterol increased [Unknown]
